FAERS Safety Report 12857238 (Version 2)
Quarter: 2016Q4

REPORT INFORMATION
  Report Type: Spontaneous
  Country: TW (occurrence: TW)
  Receive Date: 20161018
  Receipt Date: 20161024
  Transmission Date: 20170207
  Serious: Yes (Death)
  Sender: FDA-Public Use
  Company Number: TW-PFIZER INC-2016477533

PATIENT
  Age: 67 Year
  Sex: Female

DRUGS (2)
  1. SUTENT [Suspect]
     Active Substance: SUNITINIB MALATE
     Indication: RENAL CELL CARCINOMA
     Dosage: 3 DF, QD
     Route: 048
     Dates: start: 20150106
  2. SUTENT [Suspect]
     Active Substance: SUNITINIB MALATE
     Dosage: 4 DF, QD
     Route: 048

REACTIONS (1)
  - Death [Fatal]
